FAERS Safety Report 17086973 (Version 1)
Quarter: 2019Q4

REPORT INFORMATION
  Report Type: Spontaneous
  Country: ES (occurrence: ES)
  Receive Date: 20191128
  Receipt Date: 20191128
  Transmission Date: 20200122
  Serious: Yes (Other)
  Sender: FDA-Public Use
  Company Number: ES-TEVA-2019-ES-1142298

PATIENT
  Age: 76 Year
  Sex: Male

DRUGS (9)
  1. SERETIDE ACCUHALER 50 MICROGRAMOS/500 MICROGRAMOS/INHALACION, POLVO PA [Concomitant]
  2. BISOPROLOL 5 MG 60 COMPRIMIDOS [Concomitant]
  3. UNIKET 20 MG COMPRIMIDOS, 80 COMPRIMIDOS [Concomitant]
  4. ENTRESTO 97 MG/103 MG COMPRIMIDOS RECUBIERTOS CON PELICULA, 56 COMPRIM [Concomitant]
  5. SINTROM [Concomitant]
     Active Substance: ACENOCOUMAROL
  6. SEGURIL 40 MG COMPRIMIDOS , 30 COMPRIMIDOS [Concomitant]
     Active Substance: FUROSEMIDE
  7. CIPROFLOXACINO 500 MG 14 COMPRIMIDOS [Suspect]
     Active Substance: CIPROFLOXACIN
     Indication: PROSTATITIS
     Dosage: 500 MG
     Route: 048
     Dates: start: 20190912, end: 20190919
  8. SIMVASTATINA 40 MG 28 COMPRIMIDOS [Concomitant]
  9. EPLERENONA 25 MG 30 COMPRIMIDOS [Concomitant]

REACTIONS (1)
  - Muscle rupture [Unknown]

NARRATIVE: CASE EVENT DATE: 20190923
